FAERS Safety Report 4727427-2 (Version None)
Quarter: 2005Q3

REPORT INFORMATION
  Report Type: 
  Country: None (occurrence: None)
  Receive Date: 20050727
  Receipt Date: 20050727
  Transmission Date: 20060218
  Serious: Yes (Hospitalization)
  Sender: FDA-Public Use
  Company Number: None

PATIENT
  Age: 64 Year
  Sex: Female
  Weight: 73.9363 kg

DRUGS (7)
  1. LYMPHAZURIN [Suspect]
     Indication: BIOPSY LYMPH GLAND
     Dosage: 3 ML OTO
     Dates: start: 20050210
  2. SYNTHROID [Concomitant]
  3. TRIAMTERENE AND HYDROCHLOROTHIAZIDE [Concomitant]
  4. REQUIP [Concomitant]
  5. AMBIEN [Concomitant]
  6. MOBIC [Concomitant]
  7. HYDROCODONE BITARTRATE + ACETAMINOPHEN [Concomitant]

REACTIONS (2)
  - DRUG HYPERSENSITIVITY [None]
  - REACTION TO PRESERVATIVES [None]
